FAERS Safety Report 5258754-0 (Version None)
Quarter: 2007Q1

REPORT INFORMATION
  Report Type: 
  Country: None (occurrence: None)
  Receive Date: 20070306
  Receipt Date: 20070306
  Transmission Date: 20070707
  Serious: Yes (Hospitalization)
  Sender: FDA-Public Use
  Company Number: None

PATIENT
  Age: 19 Year
  Sex: Male
  Weight: 86.1834 kg

DRUGS (1)
  1. ULTRAVIST 300 [Suspect]
     Indication: ANGIOGRAM
     Dosage: 150 ML ONCE IV
     Route: 042
     Dates: start: 20061119

REACTIONS (7)
  - APNOEA [None]
  - CHOKING [None]
  - CONTRAST MEDIA REACTION [None]
  - DRUG HYPERSENSITIVITY [None]
  - PETIT MAL EPILEPSY [None]
  - RASH PRURITIC [None]
  - TACHYCARDIA [None]
